FAERS Safety Report 5917067-1 (Version None)
Quarter: 2008Q4

REPORT INFORMATION
  Report Type: 
  Country: None (occurrence: None)
  Receive Date: 20081014
  Receipt Date: 20081007
  Transmission Date: 20090506
  Serious: Yes (Other)
  Sender: FDA-Public Use
  Company Number: US-BAYER-200834113NA

PATIENT
  Sex: Male

DRUGS (1)
  1. LEVITRA [Suspect]
     Indication: DRUG USE FOR UNKNOWN INDICATION
     Dosage: UNIT DOSE: 10 MG
     Dates: start: 20080901

REACTIONS (6)
  - CHLOROPSIA [None]
  - DIZZINESS [None]
  - HEADACHE [None]
  - NASAL CONGESTION [None]
  - VISUAL ACUITY REDUCED [None]
  - XANTHOPSIA [None]
